FAERS Safety Report 22585571 (Version 1)
Quarter: 2023Q2

REPORT INFORMATION
  Report Type: Report from Study
  Country: CA (occurrence: CA)
  Receive Date: 20230610
  Receipt Date: 20230610
  Transmission Date: 20230722
  Serious: Yes (Other)
  Sender: FDA-Public Use
  Company Number: CA-CELLTRION INC.-2022CA022382

PATIENT

DRUGS (1)
  1. TRUXIMA [Suspect]
     Active Substance: RITUXIMAB-ABBS
     Indication: Glomerulonephritis minimal lesion
     Dosage: 1000 MILLIGRAM
     Route: 042
     Dates: start: 20221220

REACTIONS (2)
  - Glomerulonephritis minimal lesion [Unknown]
  - Off label use [Unknown]
